FAERS Safety Report 10638298 (Version 2)
Quarter: 2014Q4

REPORT INFORMATION
  Report Type: Spontaneous
  Country: DE (occurrence: DE)
  Receive Date: 20141208
  Receipt Date: 20141222
  Transmission Date: 20150529
  Serious: Yes (Other)
  Sender: FDA-Public Use
  Company Number: DE-GLAXOSMITHKLINE-DE2014GSK031814

PATIENT
  Age: 65 Year
  Sex: Female
  Weight: 86 kg

DRUGS (6)
  1. NEVIRAPINE. [Suspect]
     Active Substance: NEVIRAPINE
     Indication: HIV INFECTION
     Dosage: UNK
     Dates: start: 2001, end: 2001
  2. TRIZIVIR [Suspect]
     Active Substance: ABACAVIR SULFATE\LAMIVUDINE\ZIDOVUDINE
     Indication: HIV INFECTION
     Dosage: 1 UNK, BID
     Dates: start: 20010731, end: 20020301
  3. TENOFOVIR [Suspect]
     Active Substance: TENOFOVIR
     Indication: HIV INFECTION
     Dosage: UNK
     Dates: start: 2004, end: 2008
  4. COMBIVIR [Suspect]
     Active Substance: LAMIVUDINE\ZIDOVUDINE
     Indication: HIV INFECTION
     Dosage: 1 UNK, BID
     Dates: start: 20020301, end: 20021111
  5. KALETRA [Suspect]
     Active Substance: LOPINAVIR\RITONAVIR
     Indication: HIV INFECTION
     Dosage: UNK
     Dates: start: 2004, end: 2013
  6. EPIVIR [Suspect]
     Active Substance: LAMIVUDINE
     Indication: HIV INFECTION
     Dosage: 1 UNK, BID
     Dates: start: 20041222, end: 20081209

REACTIONS (9)
  - Lymph node tuberculosis [Unknown]
  - Peripheral venous disease [Unknown]
  - Blood bilirubin increased [Unknown]
  - Drug resistance [Unknown]
  - Blood alkaline phosphatase increased [Unknown]
  - Varicose vein [Unknown]
  - Blood creatine phosphokinase increased [Unknown]
  - Non-Hodgkin^s lymphoma [Unknown]
  - Dermatitis [Unknown]

NARRATIVE: CASE EVENT DATE: 2001
